FAERS Safety Report 6469450-6 (Version None)
Quarter: 2009Q4

REPORT INFORMATION
  Report Type: 
  Country: None (occurrence: None)
  Receive Date: 20091203
  Receipt Date: 20091119
  Transmission Date: 20100525
  Serious: Yes (Hospitalization, Disabling, Congenital Anomaly, Other)
  Sender: FDA-Public Use
  Company Number: GB-ELI_LILLY_AND_COMPANY-GB200911004977

PATIENT

DRUGS (6)
  1. DULOXETINE HYDROCHLORIDE [Suspect]
     Dosage: 20 MG, UNKNOWN
     Route: 064
     Dates: start: 20060308, end: 20060322
  2. CODEINE [Concomitant]
     Dosage: UNK, UNKNOWN
     Route: 064
  3. ESCITALOPRAM [Concomitant]
     Dosage: 10 MG, UNKNOWN
     Route: 064
     Dates: start: 20051017, end: 20060914
  4. FLUOXETINE [Concomitant]
     Dosage: UNK, UNKNOWN
     Route: 064
  5. LOFEPRAMINE [Concomitant]
     Dosage: 70 MG, UNKNOWN
     Route: 064
     Dates: start: 20060121, end: 20060218
  6. TRAZODONE HCL [Concomitant]
     Dosage: UNK, UNKNOWN
     Route: 064

REACTIONS (11)
  - ANGELMAN'S SYNDROME [None]
  - FOETAL MONITORING [None]
  - HYPERHIDROSIS [None]
  - IRRITABILITY [None]
  - LUNG INFECTION [None]
  - MECONIUM STAIN [None]
  - NASOPHARYNGITIS [None]
  - NEONATAL RESPIRATORY DISTRESS SYNDROME [None]
  - RASH MACULAR [None]
  - TACHYPNOEA [None]
  - TRICUSPID VALVE INCOMPETENCE [None]
